FAERS Safety Report 15195884 (Version 1)
Quarter: 2018Q3

REPORT INFORMATION
  Report Type: Spontaneous
  Country: US (occurrence: US)
  Receive Date: 20180725
  Receipt Date: 20180725
  Transmission Date: 20181010
  Serious: No
  Sender: FDA-Public Use
  Company Number: US-PFIZER INC-2018041383

PATIENT
  Age: 79 Year
  Sex: Male
  Weight: 76 kg

DRUGS (3)
  1. XALKORI [Suspect]
     Active Substance: CRIZOTINIB
     Indication: DEEP VEIN THROMBOSIS
     Dosage: 250 MG, 2X/DAY
     Route: 048
     Dates: start: 2017
  2. XALKORI [Suspect]
     Active Substance: CRIZOTINIB
     Indication: LUNG NEOPLASM MALIGNANT
  3. XALKORI [Suspect]
     Active Substance: CRIZOTINIB
     Indication: GLAUCOMA

REACTIONS (3)
  - Product packaging quantity issue [Unknown]
  - Poor quality drug administered [Unknown]
  - Tremor [Unknown]
